FAERS Safety Report 8273562-4 (Version None)
Quarter: 2012Q2

REPORT INFORMATION
  Report Type: 
  Country: None (occurrence: None)
  Receive Date: 20120411
  Receipt Date: 20120116
  Transmission Date: 20120825
  Serious: No
  Sender: FDA-Public Use
  Company Number: US-TEVA-317857USA

PATIENT
  Sex: Female

DRUGS (5)
  1. LORAZEPAM [Concomitant]
     Indication: ANXIETY
  2. NUVIGIL [Suspect]
     Indication: SOMNOLENCE
     Route: 048
     Dates: start: 20110901
  3. VICODIN [Concomitant]
     Indication: PAIN
  4. DIAZEPAM [Concomitant]
     Indication: ANXIETY
  5. VYVANSE [Concomitant]
     Indication: ATTENTION DEFICIT/HYPERACTIVITY DISORDER
     Dates: end: 20120106

REACTIONS (4)
  - FEELING ABNORMAL [None]
  - DYSARTHRIA [None]
  - DRUG PRESCRIBING ERROR [None]
  - RASH [None]
